FAERS Safety Report 17611450 (Version 1)
Quarter: 2020Q2

REPORT INFORMATION
  Report Type: Spontaneous
  Country: US (occurrence: US)
  Receive Date: 20200401
  Receipt Date: 20200401
  Transmission Date: 20200713
  Serious: Yes (Other)
  Sender: FDA-Public Use
  Company Number: None

PATIENT
  Age: 41 Year
  Sex: Female
  Weight: 60.75 kg

DRUGS (1)
  1. BOTOX COSMETIC [Suspect]
     Active Substance: ONABOTULINUMTOXINA
     Indication: SKIN COSMETIC PROCEDURE
     Dosage: ?          OTHER STRENGTH:1;?
     Route: 030
     Dates: start: 20200329, end: 20200329

REACTIONS (4)
  - Swelling face [None]
  - Burning sensation [None]
  - Pain [None]
  - Device defective [None]

NARRATIVE: CASE EVENT DATE: 20200329
